FAERS Safety Report 4364076-2 (Version None)
Quarter: 2004Q2

REPORT INFORMATION
  Report Type: 
  Country: None (occurrence: None)
  Receive Date: 20040519
  Receipt Date: 20040511
  Transmission Date: 20050107
  Serious: Yes (Hospitalization)
  Sender: FDA-Public Use
  Company Number: 2004-BP-03180RO

PATIENT
  Age: 69 Year
  Sex: Male

DRUGS (8)
  1. LEUCOVORIN CALCIUM [Suspect]
     Indication: GASTRIC CANCER
     Dosage: SEE IMAGE
     Route: 048
     Dates: start: 20031125, end: 20040331
  2. LEUCOVORIN CALCIUM [Suspect]
     Indication: GASTRIC CANCER
     Dosage: SEE IMAGE
     Route: 048
     Dates: start: 20040415
  3. TAXOL [Suspect]
     Indication: GASTRIC CANCER
     Dosage: SEE IMAGE
     Route: 042
     Dates: start: 20031125, end: 20040331
  4. TAXOL [Suspect]
     Indication: GASTRIC CANCER
     Dosage: SEE IMAGE
     Route: 042
     Dates: start: 20040407
  5. UFT [Suspect]
     Indication: GASTRIC CANCER
     Dosage: SEE IMAGE
     Route: 048
     Dates: start: 20031125, end: 20040331
  6. UFT [Suspect]
     Indication: GASTRIC CANCER
     Dosage: SEE IMAGE
     Route: 048
     Dates: start: 20040415
  7. TOFRANIL [Concomitant]
  8. FANTA (DIOVOL) [Concomitant]

REACTIONS (3)
  - GAIT DISTURBANCE [None]
  - METASTASES TO CENTRAL NERVOUS SYSTEM [None]
  - NEUROPATHY [None]
